FAERS Safety Report 12920988 (Version 1)
Quarter: 2016Q4

REPORT INFORMATION
  Report Type: Spontaneous
  Country: NL (occurrence: NL)
  Receive Date: 20161107
  Receipt Date: 20161107
  Transmission Date: 20170207
  Serious: Yes (Other)
  Sender: FDA-Public Use
  Company Number: NL-TEVA-708161ACC

PATIENT
  Sex: Male

DRUGS (3)
  1. TRIMETHOPRIM SUSP ORAAL 10MG/ML [Suspect]
     Active Substance: TRIMETHOPRIM
     Indication: RENAL DISORDER
     Dosage: 6 MILLIGRAM DAILY; 1 TIME DAILY 6 MG
     Route: 048
     Dates: start: 20160905, end: 20160914
  2. FYTOMENADION [Concomitant]
     Dosage: 150 MICROGRAM DAILY; 1 TIME DAILY 150 MCG PER OS
     Route: 048
     Dates: start: 20160913
  3. COLECALCIFEROL DRANK   5000IE/ML [Concomitant]
     Dosage: 400 IU (INTERNATIONAL UNIT) DAILY; 1 TIME DAILY 400 EH PER OS
     Route: 048
     Dates: start: 20160913

REACTIONS (1)
  - Renal tubular acidosis [Recovered/Resolved]

NARRATIVE: CASE EVENT DATE: 201609
